FAERS Safety Report 5413003-5 (Version None)
Quarter: 2007Q3

REPORT INFORMATION
  Report Type: 
  Country: None (occurrence: None)
  Receive Date: 20070813
  Receipt Date: 20070801
  Transmission Date: 20080115
  Serious: Yes (Hospitalization)
  Sender: FDA-Public Use
  Company Number: JP-PFIZER INC-2007050834

PATIENT
  Sex: Male

DRUGS (15)
  1. ESTRACYT [Suspect]
     Indication: PROSTATE CANCER
     Route: 048
  2. ZOLEDRONIC ACID [Suspect]
     Indication: METASTASES TO BONE
     Dosage: TEXT:4 MG/4 WEEKS
     Route: 042
  3. OXYCODONE HCL [Concomitant]
  4. ETOPOSIDE [Concomitant]
  5. ETIZOLAM [Concomitant]
  6. TAMSULOSIN HCL [Concomitant]
     Dates: start: 20060926
  7. DEXAMETHASONE 0.5MG TAB [Concomitant]
     Dates: start: 20070407
  8. TORSEMIDE [Concomitant]
  9. CALCITRIOL [Concomitant]
  10. TEPRENONE [Concomitant]
  11. ASPARTATE CALCIUM [Concomitant]
  12. LOXOPROFEN SODIUM [Concomitant]
  13. MEXILETINE HYDROCHLORIDE [Concomitant]
  14. GLIMEPIRIDE [Concomitant]
  15. VOGLIBOSE [Concomitant]

REACTIONS (2)
  - ANAEMIA [None]
  - CARDIAC FAILURE CONGESTIVE [None]
